FAERS Safety Report 4911247-X (Version None)
Quarter: 2006Q1

REPORT INFORMATION
  Report Type: 
  Country: None (occurrence: None)
  Receive Date: 20060209
  Receipt Date: 20060130
  Transmission Date: 20060701
  Serious: Yes (Hospitalization)
  Sender: FDA-Public Use
  Company Number: HQWYE592231JAN06

PATIENT
  Age: 23 Year
  Sex: Female

DRUGS (3)
  1. MINOCYCLINE HCL [Suspect]
     Indication: ACNE
     Dosage: 100 MG DAILY ORAL; 100 MG DAILY ORAL; 200 MG DAILY ORAL
     Route: 048
     Dates: start: 20031210, end: 20041111
  2. MINOCYCLINE HCL [Suspect]
     Indication: ACNE
     Dosage: 100 MG DAILY ORAL; 100 MG DAILY ORAL; 200 MG DAILY ORAL
     Route: 048
     Dates: start: 20041111, end: 20041201
  3. MINOCYCLINE HCL [Suspect]
     Indication: ACNE
     Dosage: 100 MG DAILY ORAL; 100 MG DAILY ORAL; 200 MG DAILY ORAL
     Route: 048
     Dates: start: 20051115, end: 20051201

REACTIONS (6)
  - ANOREXIA [None]
  - EPIGASTRIC DISCOMFORT [None]
  - LIVER DISORDER [None]
  - NAUSEA [None]
  - OCULAR ICTERUS [None]
  - YELLOW SKIN [None]
